FAERS Safety Report 5052098-8 (Version None)
Quarter: 2006Q3

REPORT INFORMATION
  Report Type: 
  Country: None (occurrence: None)
  Receive Date: 20060711
  Receipt Date: 20060620
  Transmission Date: 20061208
  Serious: Yes (Hospitalization, Other)
  Sender: FDA-Public Use
  Company Number: CA200605003439

PATIENT
  Sex: Female
  Weight: 3.3 kg

DRUGS (1)
  1. HUMALOG [Suspect]
     Dosage: TRANSPLACENTAL
     Route: 064

REACTIONS (7)
  - DRUG EXPOSURE DURING PREGNANCY [None]
  - DYSPEPSIA [None]
  - DYSPNOEA [None]
  - FEEDING DISORDER NEONATAL [None]
  - GASTROINTESTINAL DISORDER [None]
  - NEONATAL DISORDER [None]
  - PREMATURE BABY [None]
